FAERS Safety Report 21930872 (Version 1)
Quarter: 2023Q1

REPORT INFORMATION
  Report Type: Spontaneous
  Country: DE (occurrence: DE)
  Receive Date: 20230131
  Receipt Date: 20230131
  Transmission Date: 20230418
  Serious: Yes (Other)
  Sender: FDA-Public Use
  Company Number: DE-ROCHE-3248199

PATIENT
  Sex: Male

DRUGS (13)
  1. CYTARABINE [Suspect]
     Active Substance: CYTARABINE
     Indication: Diffuse large B-cell lymphoma
     Dosage: 4TH LINE, R-DHAP
     Route: 065
     Dates: start: 2013
  2. CISPLATIN [Suspect]
     Active Substance: CISPLATIN
     Indication: Diffuse large B-cell lymphoma
     Dosage: 4TH LINE, R-DHAP
     Route: 065
     Dates: start: 2013
  3. VINCRISTINE [Suspect]
     Active Substance: VINCRISTINE
     Indication: Diffuse large B-cell lymphoma
     Dosage: UNK UNK, Q2W, 14 DAYS
     Route: 065
     Dates: start: 2010
  4. ETOPOSIDE [Suspect]
     Active Substance: ETOPOSIDE
     Indication: Diffuse large B-cell lymphoma
     Dosage: 3RD LINE, R-BEAM
     Route: 065
     Dates: start: 2012
  5. EPIRUBICIN [Suspect]
     Active Substance: EPIRUBICIN
     Indication: Diffuse large B-cell lymphoma
     Dosage: UNK UNK, Q2W, FREQ 14 DAYS
     Route: 065
     Dates: start: 2010
  6. RITUXIMAB [Suspect]
     Active Substance: RITUXIMAB
     Indication: Diffuse large B-cell lymphoma
     Dosage: 4TH LINE, R-DHAP
     Route: 065
     Dates: start: 2013
  7. RITUXIMAB [Suspect]
     Active Substance: RITUXIMAB
     Dosage: 3RD LINE, R-BEAM
     Route: 065
     Dates: start: 2012
  8. RITUXIMAB [Suspect]
     Active Substance: RITUXIMAB
     Dosage: 1ST LINE, R-CHOP
     Route: 065
     Dates: start: 2010
  9. DEXAMETHASONE [Suspect]
     Active Substance: DEXAMETHASONE
     Indication: Diffuse large B-cell lymphoma
     Dosage: 4TH LINE, R-DHAP
     Route: 065
     Dates: start: 2013
  10. CYCLOPHOSPHAMIDE [Suspect]
     Active Substance: CYCLOPHOSPHAMIDE
     Indication: Diffuse large B-cell lymphoma
     Dosage: UNK, Q2W, 14 DAYS
     Route: 065
     Dates: start: 2010
  11. MELPHALAN [Suspect]
     Active Substance: MELPHALAN
     Indication: Diffuse large B-cell lymphoma
     Dosage: 3RD LINE, R-BEAM
     Route: 065
     Dates: start: 2012
  12. BICNU [Suspect]
     Active Substance: CARMUSTINE
     Indication: Diffuse large B-cell lymphoma
     Dosage: 3RD LINE, R-BEAM
     Route: 065
     Dates: start: 2012
  13. PREDNISONE [Suspect]
     Active Substance: PREDNISONE
     Indication: Diffuse large B-cell lymphoma
     Dosage: UNK, Q2W, 14 DAYS
     Route: 065
     Dates: start: 2010

REACTIONS (1)
  - Lymphoma [Not Recovered/Not Resolved]
